FAERS Safety Report 14342716 (Version 1)
Quarter: 2018Q1

REPORT INFORMATION
  Report Type: Spontaneous
  Country: FR (occurrence: FR)
  Receive Date: 20180102
  Receipt Date: 20180102
  Transmission Date: 20180509
  Serious: Yes (Hospitalization)
  Sender: FDA-Public Use
  Company Number: FR-JNJFOC-20171238065

PATIENT
  Age: 81 Year
  Sex: Male
  Weight: 81 kg

DRUGS (1)
  1. XARELTO [Suspect]
     Active Substance: RIVAROXABAN
     Indication: BRADYARRHYTHMIA
     Route: 048
     Dates: end: 20171205

REACTIONS (3)
  - Cardiac failure [Recovered/Resolved]
  - Melaena [Recovered/Resolved]
  - Anaemia [Recovering/Resolving]

NARRATIVE: CASE EVENT DATE: 201711
